FAERS Safety Report 9120347 (Version 1)
Quarter: 2013Q1

REPORT INFORMATION
  Report Type: Spontaneous
  Country: US (occurrence: US)
  Receive Date: 20130226
  Receipt Date: 20130226
  Transmission Date: 20140127
  Serious: Yes (Hospitalization, Other)
  Sender: FDA-Public Use
  Company Number: US-WATSON-2012-20183

PATIENT
  Age: 47 Year
  Sex: Male

DRUGS (2)
  1. MORPHINE SULFATE (UNKNOWN) [Suspect]
     Indication: PAIN
     Dosage: . PEAK DOSE 25MG/DAY, THEN DECREASED TO 12,5 MG
     Route: 037
  2. HYDROMORPHONE [Concomitant]
     Indication: PAIN
     Dosage: 450-550 MG DAILY
     Route: 065

REACTIONS (2)
  - Injection site granuloma [Recovered/Resolved]
  - Cauda equina syndrome [Recovered/Resolved]
